FAERS Safety Report 5524602-4 (Version None)
Quarter: 2007Q4

REPORT INFORMATION
  Report Type: 
  Country: None (occurrence: None)
  Receive Date: 20071123
  Receipt Date: 20071115
  Transmission Date: 20080405
  Serious: Yes (Hospitalization)
  Sender: FDA-Public Use
  Company Number: US-BAYER-200713745BCC

PATIENT
  Age: 66 Year
  Sex: Male

DRUGS (3)
  1. ASPIRIN [Suspect]
     Indication: STENT PLACEMENT
     Dates: start: 20070911, end: 20071004
  2. PLAVIX [Suspect]
     Indication: STENT PLACEMENT
     Route: 048
     Dates: start: 20070911, end: 20071004
  3. ATORVASTATIN CALCIUM [Concomitant]

REACTIONS (3)
  - LOCAL SWELLING [None]
  - PETECHIAE [None]
  - VASCULITIC RASH [None]
